FAERS Safety Report 9954839 (Version 2)
Quarter: 2014Q1

REPORT INFORMATION
  Report Type: Report from Study
  Country: US (occurrence: US)
  Receive Date: 20140304
  Receipt Date: 20140304
  Transmission Date: 20141002
  Serious: Yes (Other)
  Sender: FDA-Public Use
  Company Number: US-ABBVIE-13P-163-1080069-00

PATIENT
  Age: 37 Year
  Sex: Female

DRUGS (10)
  1. HUMIRA [Suspect]
     Indication: CROHN^S DISEASE
     Dates: start: 201212
  2. FOLIC ACID [Concomitant]
     Indication: PRODUCT USED FOR UNKNOWN INDICATION
  3. CYMBALTA [Concomitant]
     Indication: DEPRESSION
  4. MIRTAZAPINE [Concomitant]
     Indication: INSOMNIA
  5. VITAMIN D [Concomitant]
     Indication: PRODUCT USED FOR UNKNOWN INDICATION
  6. VITAMIN C [Concomitant]
     Indication: PRODUCT USED FOR UNKNOWN INDICATION
  7. METFORMIN [Concomitant]
     Indication: TYPE 2 DIABETES MELLITUS
  8. LEVEMIR [Concomitant]
     Indication: TYPE 2 DIABETES MELLITUS
     Dosage: AT HOUR OF SLEEP
  9. ZYRTEC [Concomitant]
     Indication: HYPERSENSITIVITY
  10. LANTUS [Concomitant]
     Indication: PRODUCT USED FOR UNKNOWN INDICATION
     Dosage: 45 UNITS IN AM AND 45 UNITS IN PM

REACTIONS (4)
  - Surgery [Unknown]
  - Nausea [Recovering/Resolving]
  - Surgery [Unknown]
  - Hernia [Unknown]
